FAERS Safety Report 13469085 (Version 1)
Quarter: 2017Q2

REPORT INFORMATION
  Report Type: Spontaneous
  Country: FR (occurrence: FR)
  Receive Date: 20170421
  Receipt Date: 20170421
  Transmission Date: 20170830
  Serious: Yes (Hospitalization)
  Sender: FDA-Public Use
  Company Number: FR-PFIZER INC-2017164970

PATIENT
  Age: 63 Year
  Sex: Male

DRUGS (20)
  1. DEXAMETHASONE. [Suspect]
     Active Substance: DEXAMETHASONE
     Indication: PROPHYLAXIS
     Dosage: UNK
     Dates: start: 20170221
  2. ZELITREX [Concomitant]
     Active Substance: VALACYCLOVIR HYDROCHLORIDE
     Dosage: 500 MG, TWICE DAILY
     Route: 048
  3. MABTHERA [Suspect]
     Active Substance: RITUXIMAB
     Dosage: 698 MG, CYCLIC (DAILY)
     Route: 042
     Dates: start: 20170314, end: 20170314
  4. PRETERAX /01421201/ [Concomitant]
     Active Substance: INDAPAMIDE\PERINDOPRIL
     Dosage: 0.5 DF, ONCE DAILY
     Route: 048
  5. GRANOCYTE [Concomitant]
     Active Substance: LENOGRASTIM
     Dosage: UNK
  6. MABTHERA [Suspect]
     Active Substance: RITUXIMAB
     Indication: MANTLE CELL LYMPHOMA
     Dosage: UNK, CYCLIC
     Dates: start: 20170221, end: 20170221
  7. INEXIUM /01479302/ [Concomitant]
     Active Substance: ESOMEPRAZOLE MAGNESIUM
     Dosage: 20 MG, ONCE DAILY
     Route: 048
  8. PERFALGAN [Concomitant]
     Active Substance: ACETAMINOPHEN
     Dosage: UNK
  9. ZOPHREN /00955301/ [Concomitant]
     Active Substance: ONDANSETRON
     Dosage: UNK
  10. NEORECORMON [Concomitant]
     Active Substance: ERYTHROPOIETIN
     Dosage: UNK
  11. BACTRIM [Concomitant]
     Active Substance: SULFAMETHOXAZOLE\TRIMETHOPRIM
     Dosage: 1 DF, THREE TIMES WEEKLY (MONDAY, WEDNESDAY, FRIDAY)
     Route: 048
  12. CARBOPLATINE HOSPIRA [Suspect]
     Active Substance: CARBOPLATIN
     Indication: MANTLE CELL LYMPHOMA
     Dosage: UNK, CYCLIC
     Dates: start: 20170221, end: 20170221
  13. CYTARABINE EBEWE [Suspect]
     Active Substance: CYTARABINE
     Dosage: 7440 MG, CYCLIC (DAILY)
     Route: 042
     Dates: start: 20170314, end: 20170314
  14. CHIBRO CADRON [Concomitant]
     Active Substance: DEXAMETHASONE SODIUM PHOSPHATE\NEOMYCIN SULFATE
     Dosage: UNK
  15. APREPITANT. [Concomitant]
     Active Substance: APREPITANT
     Dosage: UNK
  16. METOCLOPRAMIDE. [Concomitant]
     Active Substance: METOCLOPRAMIDE
     Dosage: UNK
  17. CARBOPLATINE HOSPIRA [Suspect]
     Active Substance: CARBOPLATIN
     Dosage: 800 MG, CYCLIC (DAILY)
     Route: 042
     Dates: start: 20170314, end: 20170314
  18. CYTARABINE EBEWE [Suspect]
     Active Substance: CYTARABINE
     Indication: MANTLE CELL LYMPHOMA
     Dosage: UNK, CYCLIC
     Dates: start: 20170221, end: 20170221
  19. DEXAMETHASONE. [Suspect]
     Active Substance: DEXAMETHASONE
     Dosage: 40 MG, ONCE DAILY
     Route: 048
     Dates: start: 20170314, end: 20170319
  20. ACUPAN [Concomitant]
     Active Substance: NEFOPAM HYDROCHLORIDE
     Dosage: UNK

REACTIONS (1)
  - Atrioventricular block [Recovered/Resolved]

NARRATIVE: CASE EVENT DATE: 20170314
